FAERS Safety Report 9384326 (Version 2)
Quarter: 2013Q3

REPORT INFORMATION
  Report Type: Report from Study
  Country: US (occurrence: US)
  Receive Date: 20130705
  Receipt Date: 20130728
  Transmission Date: 20140515
  Serious: Yes (Other)
  Sender: FDA-Public Use
  Company Number: PHHY2013US071087

PATIENT
  Age: 56 Year
  Sex: Female

DRUGS (6)
  1. GILENYA [Suspect]
     Indication: MULTIPLE SCLEROSIS
     Dosage: 0.5 MG, QD
     Route: 048
     Dates: start: 20110118
  2. VITAMIN B12 [Concomitant]
     Indication: ANAEMIA
  3. VITAMIN B COMPLEX [Concomitant]
  4. LIORESAL [Concomitant]
     Dosage: 20 MG, UNK
  5. GABAPENTIN [Concomitant]
  6. ZOCOR [Concomitant]
     Dosage: 40 MG, UNK

REACTIONS (8)
  - Epicondylitis [Unknown]
  - Pain [Unknown]
  - Swelling [Unknown]
  - Arthralgia [Unknown]
  - Limb injury [Recovering/Resolving]
  - Tendonitis [Unknown]
  - Insomnia [Unknown]
  - Lymphocyte count decreased [Unknown]
